FAERS Safety Report 8557062-X (Version None)
Quarter: 2012Q3

REPORT INFORMATION
  Report Type: 
  Country: None (occurrence: None)
  Receive Date: 20120801
  Receipt Date: 20120720
  Transmission Date: 20120928
  Serious: Yes (Other)
  Sender: FDA-Public Use
  Company Number: CA-ROCHE-1091156

PATIENT
  Age: 63 Year
  Sex: Female

DRUGS (2)
  1. TYKERB [Suspect]
     Indication: PRODUCT USED FOR UNKNOWN INDICATION
     Route: 048
  2. XELODA [Suspect]
     Indication: PRODUCT USED FOR UNKNOWN INDICATION
     Route: 065

REACTIONS (11)
  - DECREASED APPETITE [None]
  - MEMORY IMPAIRMENT [None]
  - ASTHENIA [None]
  - DRUG INEFFECTIVE [None]
  - WEIGHT DECREASED [None]
  - BREAST CANCER [None]
  - ERYTHEMA [None]
  - HAEMORRHAGE [None]
  - CONTUSION [None]
  - DIZZINESS [None]
  - NEOPLASM MALIGNANT [None]
